FAERS Safety Report 13596260 (Version 1)
Quarter: 2017Q2

REPORT INFORMATION
  Report Type: Spontaneous
  Country: US (occurrence: US)
  Receive Date: 20170530
  Receipt Date: 20170530
  Transmission Date: 20170830
  Serious: No
  Sender: FDA-Public Use
  Company Number: None

PATIENT
  Age: 63 Year
  Sex: Female

DRUGS (1)
  1. NUTROPIN AQ NUSPIN 10 [Suspect]
     Active Substance: SOMATROPIN

REACTIONS (5)
  - Abscess [None]
  - Tooth disorder [None]
  - Furuncle [None]
  - Blood pressure increased [None]
  - Upper respiratory tract infection [None]

NARRATIVE: CASE EVENT DATE: 20170530
